FAERS Safety Report 5677274-2 (Version None)
Quarter: 2008Q1

REPORT INFORMATION
  Report Type: 
  Country: None (occurrence: None)
  Receive Date: 20080321
  Receipt Date: 20080321
  Transmission Date: 20080703
  Serious: Yes (Hospitalization)
  Sender: FDA-Public Use
  Company Number: None

PATIENT
  Age: 78 Year
  Sex: Male
  Weight: 88.45 kg

DRUGS (1)
  1. MOXIFLOXACIN HCL [Suspect]
     Indication: INFECTION
     Dosage: 400MG ONCE IV
     Route: 042
     Dates: start: 20070502, end: 20070502

REACTIONS (6)
  - BACK PAIN [None]
  - INFUSION SITE PRURITUS [None]
  - INFUSION SITE RASH [None]
  - MUSCULOSKELETAL CHEST PAIN [None]
  - PRURITUS [None]
  - URTICARIA [None]
